FAERS Safety Report 4426507-9 (Version None)
Quarter: 2004Q3

REPORT INFORMATION
  Report Type: 
  Country: None (occurrence: None)
  Receive Date: 20040812
  Receipt Date: 20040812
  Transmission Date: 20050211
  Serious: Yes (Hospitalization)
  Sender: FDA-Public Use
  Company Number: None

PATIENT
  Sex: Male
  Weight: 80.7 kg

DRUGS (13)
  1. TAXOL [Suspect]
  2. CISPLATIN [Suspect]
  3. FLUOROURACIL [Suspect]
  4. TAXOL [Concomitant]
  5. CISPLATIN [Concomitant]
  6. FLUOROURACIL [Concomitant]
  7. NEULASTA [Concomitant]
  8. MIODARONE [Concomitant]
  9. SIMVASTATIN [Concomitant]
  10. TESSALON [Concomitant]
  11. ZOSYN [Concomitant]
  12. DILAUDID [Concomitant]
  13. ASPIRIN [Concomitant]

REACTIONS (4)
  - BACK PAIN [None]
  - CHILLS [None]
  - COUGH [None]
  - PYREXIA [None]
